FAERS Safety Report 5308643-8 (Version None)
Quarter: 2007Q2

REPORT INFORMATION
  Report Type: 
  Country: None (occurrence: None)
  Receive Date: 20070426
  Receipt Date: 20070423
  Transmission Date: 20071010
  Serious: Yes (Life-Threatening, Hospitalization)
  Sender: FDA-Public Use
  Company Number: FR-BRISTOL-MYERS SQUIBB COMPANY-13758941

PATIENT
  Age: 63 Year
  Sex: Male
  Weight: 90 kg

DRUGS (7)
  1. COUMADIN [Suspect]
     Indication: PULMONARY EMBOLISM
     Route: 048
     Dates: start: 20020101
  2. COUMADIN [Suspect]
     Indication: PHLEBITIS
     Route: 048
     Dates: start: 20020101
  3. ALLOPURINOL [Concomitant]
     Route: 048
  4. FENOFIBRATE [Concomitant]
     Indication: HYPERCHOLESTEROLAEMIA
     Route: 048
  5. NEXIUM [Concomitant]
     Indication: GASTRIC ULCER
     Route: 048
  6. INDAPAMIDE [Concomitant]
     Route: 048
  7. CALDINE [Concomitant]
     Indication: HYPERTENSION
     Route: 048

REACTIONS (2)
  - HAEMORRHAGE INTRACRANIAL [None]
  - ROAD TRAFFIC ACCIDENT [None]
